FAERS Safety Report 5202285-0 (Version None)
Quarter: 2007Q1

REPORT INFORMATION
  Report Type: 
  Country: None (occurrence: None)
  Receive Date: 20070109
  Receipt Date: 20070102
  Transmission Date: 20070707
  Serious: Yes (Other)
  Sender: FDA-Public Use
  Company Number: GB-GLAXOSMITHKLINE-B0453274A

PATIENT
  Age: 63 Year
  Sex: Male

DRUGS (1)
  1. AUGMENTIN '125' [Suspect]
     Indication: TONGUE DISORDER
     Route: 048
     Dates: start: 20061128, end: 20061128

REACTIONS (2)
  - RASH [None]
  - SWELLING FACE [None]
